FAERS Safety Report 10025792 (Version 2)
Quarter: 2014Q1

REPORT INFORMATION
  Report Type: Report from Study
  Country: US (occurrence: US)
  Receive Date: 20140320
  Receipt Date: 20140320
  Transmission Date: 20141002
  Serious: Yes (Death, Hospitalization)
  Sender: FDA-Public Use
  Company Number: US-BRISTOL-MYERS SQUIBB COMPANY-15106701

PATIENT
  Age: 68 Year
  Sex: Male

DRUGS (16)
  1. IPILIMUMAB [Suspect]
     Indication: MALIGNANT MELANOMA
     Route: 042
     Dates: start: 20100428, end: 20100630
  2. AMIODARONE [Concomitant]
     Dosage: 200MG ORAL TABS?1 DF:1 TABS
     Route: 048
  3. DOCUSATE SODIUM + SENNA [Concomitant]
     Dosage: 1 DF:2 TABS
     Route: 048
  4. AVEENO BATH [Concomitant]
     Indication: PRURITUS
     Route: 061
  5. LUBRIDERM [Concomitant]
     Indication: DRY SKIN
     Route: 061
  6. MEGESTROL [Concomitant]
     Route: 048
  7. MORPHINE [Concomitant]
     Dosage: MORPHINE 15 MG ORAL TABLET, EXTENDED RELEASE?1 DF = 1 TABS
     Route: 048
  8. MULTIVITAMIN [Concomitant]
     Dosage: 1 DF : 1 TABS
     Route: 048
  9. ZANTAC [Concomitant]
     Dosage: 150 MILLIGRAM BY MOUTH TWICE PER DAY?1 DF : 1 TABS
     Route: 048
  10. XANAX [Concomitant]
     Indication: ANXIETY
     Dosage: 150 MILLIGRAM BY MOUTH TWICE PER DAY?1 DF: 2.5 MG BID AND 50 MG AT BEDTIME
     Route: 048
  11. ZOFRAN [Concomitant]
     Indication: VOMITING
     Route: 048
  12. MIRALAX [Concomitant]
     Indication: CONSTIPATION
     Dosage: MIRALAX ORAL POWDER FOR RECONSTITUTION
     Route: 048
  13. LOMOTIL [Concomitant]
     Indication: DIARRHOEA
     Dosage: 1 DF = 1 TABLET
     Route: 048
  14. SERTRALINE [Concomitant]
     Route: 048
  15. CALCIUM + VITAMIN D [Concomitant]
     Dosage: 1 DF = 1 TABLET
     Route: 048
  16. TYLENOL [Concomitant]
     Route: 048

REACTIONS (3)
  - Malignant neoplasm progression [Fatal]
  - Pyrexia [Recovered/Resolved]
  - Fatigue [Recovered/Resolved]
